FAERS Safety Report 9034749 (Version 1)
Quarter: 2013Q1

REPORT INFORMATION
  Report Type: Spontaneous
  Country: JP (occurrence: None)
  Receive Date: 20130118
  Receipt Date: 20130118
  Transmission Date: 20140127
  Serious: Yes (Life-Threatening, Hospitalization)
  Sender: FDA-Public Use
  Company Number: TCI2012A07158

PATIENT
  Age: 64 Year
  Sex: Male

DRUGS (8)
  1. ACTOS (PIOGLITAZONE HYDROCHLORIDE) [Suspect]
     Indication: TYPE 2 DIABETES MELLITUS
     Dosage: (15MG, 1 IN 1 D)
     Route: 048
     Dates: start: 20070120, end: 20071201
  2. GLIMICRON (GLICLAZIDE) [Concomitant]
  3. AMARYL (GLIMEPIRIDE) [Concomitant]
  4. NELBIS (METFORMIN HYDROCHLORIDE) [Concomitant]
  5. SEIBULE (MIGLITOL) [Concomitant]
  6. JANUVIA (SITAGLIPTIN PHOSPHATE) [Concomitant]
  7. CARDENALIN ( DOXAZOSIN MESILATE) [Concomitant]
  8. TANATRIL ( IMIDAPRIL HYDROCHLORIDE) [Concomitant]

REACTIONS (3)
  - Ureteric cancer [None]
  - Bladder cancer [None]
  - Transitional cell carcinoma [None]
